FAERS Safety Report 5507583-9 (Version None)
Quarter: 2007Q4

REPORT INFORMATION
  Report Type: 
  Country: None (occurrence: None)
  Receive Date: 20071106
  Receipt Date: 20071101
  Transmission Date: 20080405
  Serious: Yes (Death)
  Sender: FDA-Public Use
  Company Number: US-BRACCO-BDI-010078

PATIENT
  Sex: Male

DRUGS (2)
  1. PROHANCE [Suspect]
     Route: 042
     Dates: start: 20070815, end: 20070815
  2. PROHANCE [Suspect]
     Indication: NUCLEAR MAGNETIC RESONANCE IMAGING BRAIN
     Route: 042
     Dates: start: 20070815, end: 20070815

REACTIONS (3)
  - CONVULSION [None]
  - DYSPNOEA [None]
  - RESPIRATORY ARREST [None]
